FAERS Safety Report 12555592 (Version 1)
Quarter: 2016Q3

REPORT INFORMATION
  Report Type: Report from Study
  Country: CA (occurrence: CA)
  Receive Date: 20160714
  Receipt Date: 20160714
  Transmission Date: 20161109
  Serious: Yes (Other)
  Sender: FDA-Public Use
  Company Number: PHHY2016CA095823

PATIENT
  Age: 38 Year
  Sex: Male

DRUGS (1)
  1. DESFERAL [Suspect]
     Active Substance: DEFEROXAMINE MESYLATE
     Indication: THALASSAEMIA BETA
     Route: 042

REACTIONS (3)
  - Pain [Unknown]
  - Erythema [Unknown]
  - Hepatitis [Unknown]

NARRATIVE: CASE EVENT DATE: 201312
